FAERS Safety Report 6962743-5 (Version None)
Quarter: 2010Q3

REPORT INFORMATION
  Report Type: 
  Country: None (occurrence: None)
  Receive Date: 20100902
  Receipt Date: 20100824
  Transmission Date: 20110219
  Serious: Yes (Hospitalization)
  Sender: FDA-Public Use
  Company Number: JP-BRISTOL-MYERS SQUIBB COMPANY-15236862

PATIENT
  Age: 5 Decade
  Sex: Female

DRUGS (2)
  1. ERBITUX [Suspect]
     Indication: RECTAL CANCER
     Route: 042
  2. IRINOTECAN HCL [Suspect]
     Indication: RECTAL CANCER
     Route: 042

REACTIONS (4)
  - APHAGIA [None]
  - C-REACTIVE PROTEIN INCREASED [None]
  - DIARRHOEA [None]
  - NEUTROPHIL COUNT DECREASED [None]
